FAERS Safety Report 7767174-6 (Version None)
Quarter: 2011Q3

REPORT INFORMATION
  Report Type: 
  Country: None (occurrence: None)
  Receive Date: 20110922
  Receipt Date: 20110526
  Transmission Date: 20111222
  Serious: No
  Sender: FDA-Public Use
  Company Number: US-ASTRAZENECA-2011SE32979

PATIENT
  Age: 40 Year
  Sex: Male
  Weight: 104.3 kg

DRUGS (1)
  1. SEROQUEL XR [Suspect]
     Indication: BIPOLAR DISORDER
     Route: 048

REACTIONS (4)
  - PARANOIA [None]
  - SCHIZOPHRENIA [None]
  - MANIA [None]
  - DRUG DOSE OMISSION [None]
